FAERS Safety Report 20973830 (Version 2)
Quarter: 2022Q2

REPORT INFORMATION
  Report Type: Spontaneous
  Country: JP (occurrence: JP)
  Receive Date: 20220617
  Receipt Date: 20220622
  Transmission Date: 20220721
  Serious: Yes (Other)
  Sender: FDA-Public Use
  Company Number: JP-AMGEN-JPNSP2022101757

PATIENT
  Age: 68 Year
  Sex: Male

DRUGS (3)
  1. OTEZLA [Suspect]
     Active Substance: APREMILAST
     Indication: Psoriasis
     Dosage: 30 MILLIGRAM, QD
     Route: 048
     Dates: start: 20210301, end: 20220614
  2. BETAMETHASONE BUTYRATE PROPIONATE\MAXACALCITOL [Concomitant]
     Active Substance: BETAMETHASONE BUTYRATE PROPIONATE\MAXACALCITOL
     Indication: Rash
     Dosage: UNK
  3. CLOBETASOL [Concomitant]
     Active Substance: CLOBETASOL
     Indication: Skin disorder
     Dosage: UNK

REACTIONS (3)
  - Hallucination [Unknown]
  - Somnambulism [Unknown]
  - Off label use [Unknown]

NARRATIVE: CASE EVENT DATE: 20210301
